FAERS Safety Report 25623666 (Version 1)
Quarter: 2025Q3

REPORT INFORMATION
  Report Type: Report from Study
  Country: US (occurrence: US)
  Receive Date: 20250730
  Receipt Date: 20250730
  Transmission Date: 20251020
  Serious: No
  Sender: MALLINCKRODT
  Company Number: US-MALLINCKRODT-MNK202504545

PATIENT
  Sex: Female

DRUGS (1)
  1. CORTICOTROPIN [Suspect]
     Active Substance: CORTICOTROPIN
     Indication: Orbital myositis

REACTIONS (5)
  - Throat irritation [Unknown]
  - Dyspnoea [Unknown]
  - Tongue blistering [Unknown]
  - Fluid retention [Unknown]
  - Swollen tongue [Unknown]
